FAERS Safety Report 22273918 (Version 4)
Quarter: 2025Q4

REPORT INFORMATION
  Report Type: Spontaneous
  Country: EU (occurrence: EU)
  Receive Date: 20230502
  Receipt Date: 20251112
  Transmission Date: 20260118
  Serious: Yes (Life-Threatening, Hospitalization, Other)
  Sender: ACCORD
  Company Number: None

PATIENT
  Age: 55 Year
  Sex: Male

DRUGS (22)
  1. DAPTOMYCIN [Suspect]
     Active Substance: DAPTOMYCIN
     Indication: Bacterial infection
     Dates: start: 20230211, end: 20230306
  2. CIPROFLOXACIN [Suspect]
     Active Substance: CIPROFLOXACIN
     Indication: Bacterial infection
     Dates: start: 20230203, end: 20230208
  3. DOXORUBICIN [Suspect]
     Active Substance: DOXORUBICIN
     Indication: Diffuse large B-cell lymphoma
     Dosage: 1 TREATMENT
     Dates: start: 20221227
  4. ACETAMINOPHEN [Suspect]
     Active Substance: ACETAMINOPHEN
     Indication: Pain
     Dosage: 1 TABLET EVERY 6 HOURS, MAXIMUM 3 TABLETS/D
     Dates: start: 20230211
  5. CYCLOPHOSPHAMIDE [Suspect]
     Active Substance: CYCLOPHOSPHAMIDE
     Indication: Diffuse large B-cell lymphoma
     Dosage: 1 TREATMENT
     Dates: start: 20221227
  6. PANTOPRAZOLE [Suspect]
     Active Substance: PANTOPRAZOLE
     Indication: Gastritis prophylaxis
     Dates: start: 20230106
  7. NALOXEGOL [Suspect]
     Active Substance: NALOXEGOL
     Indication: Constipation
     Dosage: STRENGTH: 25 MG, AS REQUIRED
     Dates: start: 20230211
  8. AMITRIPTYLINE HYDROCHLORIDE [Suspect]
     Active Substance: AMITRIPTYLINE HYDROCHLORIDE
     Indication: Pain
     Dosage: 5 DROPS IN THE MORNING AND 10 DROPS IN THE AFTERNOON AND EVENING
     Dates: start: 20221210
  9. BACTRIM [Suspect]
     Active Substance: SULFAMETHOXAZOLE\TRIMETHOPRIM
     Indication: Bacterial infection
     Dosage: 1 TAB IN THE MORNING (400 MG)
     Dates: start: 20230106, end: 20230303
  10. VINCRISTINE [Suspect]
     Active Substance: VINCRISTINE
     Indication: Diffuse large B-cell lymphoma
     Dosage: 1 TREATMENT
     Dates: start: 20221227
  11. CILASTATIN SODIUM\IMIPENEM [Suspect]
     Active Substance: CILASTATIN SODIUM\IMIPENEM
     Indication: Bacterial infection
     Dosage: STRENGTH: 500MG/500MG, 1 INJECTION (800 MG) PER DAY
     Dates: start: 20230114, end: 20230208
  12. CEFTRIAXONE [Suspect]
     Active Substance: CEFTRIAXONE
     Indication: Bacterial infection
     Dosage: 1 G MORNING AND EVENING
     Dates: start: 20230209
  13. ACUPAN [Suspect]
     Active Substance: NEFOPAM HYDROCHLORIDE
     Indication: Pain
     Dosage: ONE AMPOULE EVERY 4 HOURS IF PAIN
     Dates: start: 20230106, end: 20230302
  14. ALPRAZOLAM [Suspect]
     Active Substance: ALPRAZOLAM
     Indication: Anxiety
     Dosage: 1 TAB 0.25MG IF ANXIETY
     Dates: start: 20230106, end: 20230209
  15. LOVENOX [Suspect]
     Active Substance: ENOXAPARIN SODIUM
     Indication: Prophylaxis
     Dates: start: 20230210
  16. ARANESP [Suspect]
     Active Substance: DARBEPOETIN ALFA
     Indication: Anaemia
     Dosage: 1 ADMINISTRATION PER WEEK
     Dates: start: 20230213
  17. MORPHINE SULFATE [Suspect]
     Active Substance: MORPHINE SULFATE
     Indication: Pain
     Dosage: 1 TAB SKENAN LP 30 MG EVERY 12 HOURS
     Dates: start: 20230210, end: 20230218
  18. LEUCOVORIN CALCIUM [Suspect]
     Active Substance: LEUCOVORIN CALCIUM
     Indication: Prophylaxis
     Dosage: A TAB EVERY MONDAY AND THURSDAY
     Dates: start: 20230102
  19. METRONIDAZOLE [Suspect]
     Active Substance: METRONIDAZOLE
     Indication: Bacterial infection
     Dosage: 500 MG MORNING, NOON AND EVENING
     Dates: start: 20230209, end: 20230303
  20. RITUXIMAB [Suspect]
     Active Substance: RITUXIMAB
     Indication: Diffuse large B-cell lymphoma
     Dosage: 1 TREATMENT
     Dates: start: 20221227
  21. CASPOFUNGIN ACETATE [Suspect]
     Active Substance: CASPOFUNGIN ACETATE
     Indication: Fungal infection
     Dates: start: 20230126
  22. VALACYCLOVIR HYDROCHLORIDE [Suspect]
     Active Substance: VALACYCLOVIR HYDROCHLORIDE
     Indication: Bacterial infection
     Dosage: 500 MG MORNING AND EVENING
     Dates: start: 20230106

REACTIONS (1)
  - Agranulocytosis [Recovered/Resolved]

NARRATIVE: CASE EVENT DATE: 20230201
